FAERS Safety Report 8621998-1 (Version None)
Quarter: 2012Q3

REPORT INFORMATION
  Report Type: 
  Country: None (occurrence: None)
  Receive Date: 20120822
  Receipt Date: 20120822
  Transmission Date: 20120928
  Serious: Yes (Death, Hospitalization)
  Sender: FDA-Public Use
  Company Number: None

PATIENT
  Sex: Male
  Weight: 78 kg

DRUGS (5)
  1. METHOTREXATE [Suspect]
     Dosage: 30 M, INTRATHECAL
     Route: 037
     Dates: end: 20120809
  2. PREDNISONE [Suspect]
     Dosage: 3360 MG, ORAL
     Route: 048
     Dates: end: 20120808
  3. PEG-L-ASPARAGINASE (PEGASPARGASE, ONCOSPAR) [Suspect]
     Dosage: 4900 IU, INTRAVENOUS
     Route: 042
     Dates: end: 20120715
  4. CYTARABINE [Suspect]
     Dosage: 70 MG, INTRATHECAL
     Route: 037
     Dates: end: 20120712
  5. DAUNORUBICIN HCL [Suspect]
     Dosage: 200 MG
     Dates: end: 20120802

REACTIONS (10)
  - COUGH [None]
  - PAIN IN EXTREMITY [None]
  - HYPOTENSION [None]
  - SEPTIC EMBOLUS [None]
  - CIRCULATORY COLLAPSE [None]
  - FUNGAL TEST POSITIVE [None]
  - ASTHENIA [None]
  - PARAESTHESIA [None]
  - HYPOXIA [None]
  - SPLENIC INFARCTION [None]
